FAERS Safety Report 18748665 (Version 1)
Quarter: 2021Q1

REPORT INFORMATION
  Report Type: Spontaneous
  Country: US (occurrence: US)
  Receive Date: 20210116
  Receipt Date: 20210116
  Transmission Date: 20210419
  Serious: No
  Sender: FDA-Public Use
  Company Number: US-SPECGX-T202000478

PATIENT
  Sex: Male
  Weight: 72 kg

DRUGS (3)
  1. ALPRAZOLAM. [Concomitant]
     Active Substance: ALPRAZOLAM
     Indication: PRODUCT USED FOR UNKNOWN INDICATION
     Dosage: 2 MILLIGRAM, TID
     Route: 048
  2. HYDROMORPHONE [Suspect]
     Active Substance: HYDROMORPHONE
     Indication: RENAL CANCER
     Dosage: 8 MILLIGRAM, QID
     Route: 048
     Dates: end: 202005
  3. HYDROMORPHONE [Suspect]
     Active Substance: HYDROMORPHONE
     Indication: SLEEP DISORDER
     Dosage: 8 MILLIGRAM, QID
     Route: 048
     Dates: start: 202005

REACTIONS (2)
  - Mental impairment [Unknown]
  - Drug ineffective for unapproved indication [Unknown]
